FAERS Safety Report 9136428 (Version 1)
Quarter: 2013Q1

REPORT INFORMATION
  Report Type: Spontaneous
  Country: US (occurrence: US)
  Receive Date: 20130219
  Receipt Date: 20130219
  Transmission Date: 20140127
  Serious: No
  Sender: FDA-Public Use
  Company Number: US-BRISTOL-MYERS SQUIBB COMPANY-16836793

PATIENT
  Age: 61 Year
  Sex: Female

DRUGS (11)
  1. ORENCIA FOR INJ [Suspect]
  2. CELEBREX [Concomitant]
  3. PERCOCET [Concomitant]
  4. PREMARIN [Concomitant]
  5. ISOSORBIDE [Concomitant]
  6. RANEXA [Concomitant]
  7. METOPROLOL [Concomitant]
  8. EXFORGE [Concomitant]
  9. CALCIUM [Concomitant]
  10. PRILOSEC [Concomitant]
  11. ZOFRAN [Concomitant]

REACTIONS (1)
  - Headache [Unknown]
